FAERS Safety Report 5170765-2 (Version None)
Quarter: 2006Q4

REPORT INFORMATION
  Report Type: 
  Country: None (occurrence: None)
  Receive Date: 20060919
  Receipt Date: 20060605
  Transmission Date: 20070319
  Serious: No
  Sender: FDA-Public Use
  Company Number: BDI-008310

PATIENT
  Age: 64 Year
  Sex: Male
  Weight: 77 kg

DRUGS (3)
  1. MULTIHANCE [Suspect]
     Indication: ANGIOGRAM
     Dosage: 40 ML ONCE IV
     Route: 042
     Dates: start: 20060602, end: 20060602
  2. MULTIHANCE [Suspect]
     Indication: CORONARY ARTERY DISEASE
     Dosage: 40 ML ONCE IV
     Route: 042
     Dates: start: 20060602, end: 20060602
  3. MULTIHANCE [Suspect]
     Indication: HYPERTENSION
     Dosage: 40 ML ONCE IV
     Route: 042
     Dates: start: 20060602, end: 20060602

REACTIONS (6)
  - CHEST DISCOMFORT [None]
  - DYSPNOEA [None]
  - FEELING HOT [None]
  - FLUSHING [None]
  - HYPERHIDROSIS [None]
  - NAUSEA [None]
